FAERS Safety Report 21392459 (Version 2)
Quarter: 2022Q4

REPORT INFORMATION
  Report Type: Spontaneous
  Country: US (occurrence: US)
  Receive Date: 20220929
  Receipt Date: 20221014
  Transmission Date: 20230113
  Serious: Yes (Life-Threatening, Hospitalization)
  Sender: FDA-Public Use
  Company Number: US-TEVA-2022-US-2076309

PATIENT
  Age: 5 Year
  Sex: Female

DRUGS (10)
  1. EPINEPHRINE [Suspect]
     Active Substance: EPINEPHRINE
     Indication: Hypotension
     Route: 050
  2. NOREPINEPHRINE [Suspect]
     Active Substance: NOREPINEPHRINE
     Indication: Hypotension
     Route: 050
  3. HYDROCORTISONE [Suspect]
     Active Substance: HYDROCORTISONE
     Indication: Hypotension
     Route: 065
  4. METHYLPREDNISOLONE [Suspect]
     Active Substance: METHYLPREDNISOLONE
     Indication: Multisystem inflammatory syndrome in children
     Dosage: HIGH DOSE
     Route: 042
  5. SALINE [Suspect]
     Active Substance: SODIUM CHLORIDE
     Indication: Hypotension
     Dosage: 60 ML/KG
     Route: 065
  6. REMDESIVIR [Suspect]
     Active Substance: REMDESIVIR
     Indication: COVID-19
     Route: 065
  7. COVID-19 CONVALESCENT PLASMA [Suspect]
     Active Substance: COVID-19 CONVALESCENT PLASMA
     Indication: Product used for unknown indication
     Route: 065
  8. MILRINONE [Suspect]
     Active Substance: MILRINONE
     Indication: Cardiogenic shock
     Route: 065
  9. IMMUNE GLOBULIN NOS [Suspect]
     Active Substance: IMMUNE GLOBULIN NOS
     Indication: Multisystem inflammatory syndrome in children
     Route: 042
  10. ANAKINRA [Suspect]
     Active Substance: ANAKINRA
     Indication: Multisystem inflammatory syndrome in children
     Route: 065

REACTIONS (2)
  - Drug ineffective [Unknown]
  - Off label use [Unknown]
